FAERS Safety Report 6692210-8 (Version None)
Quarter: 2010Q2

REPORT INFORMATION
  Report Type: 
  Country: None (occurrence: None)
  Receive Date: 20100422
  Receipt Date: 20091228
  Transmission Date: 20101027
  Serious: No
  Sender: FDA-Public Use
  Company Number: US-ASTRAZENECA-2009SE33675

PATIENT
  Age: 21859 Day
  Sex: Male
  Weight: 83.9 kg

DRUGS (4)
  1. METOPROLOL SUCCINATE [Suspect]
     Indication: HYPERTENSION
     Route: 048
  2. METOPROLOL SUCCINATE [Suspect]
     Route: 048
     Dates: start: 20091201
  3. LISINOPRIL [Concomitant]
  4. NEXIUM [Concomitant]
     Indication: BARRETT'S OESOPHAGUS

REACTIONS (3)
  - BLOOD PRESSURE INCREASED [None]
  - DRUG INEFFECTIVE [None]
  - HYPOGLYCAEMIA [None]
